FAERS Safety Report 23259689 (Version 2)
Quarter: 2023Q4

REPORT INFORMATION
  Report Type: Spontaneous
  Country: BR (occurrence: BR)
  Receive Date: 20231204
  Receipt Date: 20231218
  Transmission Date: 20240110
  Serious: Yes (Life-Threatening, Other)
  Sender: FDA-Public Use
  Company Number: BR-PFIZER INC-PV202300190157

PATIENT
  Age: 86 Year
  Sex: Male
  Weight: 62 kg

DRUGS (8)
  1. BOSULIF [Suspect]
     Active Substance: BOSUTINIB MONOHYDRATE
     Indication: Chronic myeloid leukaemia
     Dosage: 500 MG, DAILY
     Route: 048
     Dates: start: 202308, end: 202309
  2. BOSULIF [Suspect]
     Active Substance: BOSUTINIB MONOHYDRATE
     Dosage: 400 MG
  3. PROPAFENONE HYDROCHLORIDE [Concomitant]
     Active Substance: PROPAFENONE HYDROCHLORIDE
     Indication: Vascular operation
     Dosage: 5 YEARS, WHICH WAS WHEN HE WAS OPERATED
  4. DIOVAN HCT [Concomitant]
     Active Substance: HYDROCHLOROTHIAZIDE\VALSARTAN
     Indication: Hypertension
     Dosage: 320 + 12.5MG, FOR 5 YEARS
  5. QUETIAPINE [Concomitant]
     Active Substance: QUETIAPINE
     Indication: Panic disorder
     Dosage: 4 MONTHS BEFORE
  6. QUETIAPINE [Concomitant]
     Active Substance: QUETIAPINE
     Indication: Anxiety
  7. VORTIOXETINE [Concomitant]
     Active Substance: VORTIOXETINE
     Indication: Panic disorder
     Dosage: 4 MONTHS BEFORE
  8. VORTIOXETINE [Concomitant]
     Active Substance: VORTIOXETINE
     Indication: Anxiety

REACTIONS (7)
  - Diarrhoea [Not Recovered/Not Resolved]
  - Vomiting [Not Recovered/Not Resolved]
  - Dehydration [Recovered/Resolved]
  - Weight decreased [Unknown]
  - Acute kidney injury [Unknown]
  - General physical health deterioration [Unknown]
  - Asthenia [Unknown]

NARRATIVE: CASE EVENT DATE: 20230901
